FAERS Safety Report 13823206 (Version 2)
Quarter: 2017Q3

REPORT INFORMATION
  Report Type: Spontaneous
  Country: IT (occurrence: IT)
  Receive Date: 20170802
  Receipt Date: 20170927
  Transmission Date: 20171127
  Serious: Yes (Other)
  Sender: FDA-Public Use
  Company Number: IT-BRISTOL-MYERS SQUIBB COMPANY-BMS-2017-066834

PATIENT
  Sex: Female

DRUGS (4)
  1. ORENCIA [Suspect]
     Active Substance: ABATACEPT
     Indication: RHEUMATOID ARTHRITIS
     Dosage: 125 MG, QWK
     Route: 058
     Dates: start: 20170720
  2. MESALAZINE DCI [Concomitant]
     Indication: PRODUCT USED FOR UNKNOWN INDICATION
     Dosage: 800 MG, UNK
     Route: 065
  3. NORMIX [Concomitant]
     Active Substance: RIFAXIMIN
     Indication: RHEUMATOID ARTHRITIS
     Dosage: 800 MG, QD
     Route: 048
     Dates: start: 20170725, end: 20170731
  4. BUDESONIDE. [Concomitant]
     Active Substance: BUDESONIDE
     Indication: PRODUCT USED FOR UNKNOWN INDICATION
     Dosage: 9 MG, UNK
     Route: 065

REACTIONS (3)
  - Colitis ulcerative [Unknown]
  - Fibromyalgia [Unknown]
  - Diverticulitis intestinal haemorrhagic [Unknown]
